FAERS Safety Report 12200394 (Version 3)
Quarter: 2016Q3

REPORT INFORMATION
  Report Type: Spontaneous
  Country: US (occurrence: US)
  Receive Date: 20160322
  Receipt Date: 20160705
  Transmission Date: 20161109
  Serious: No
  Sender: FDA-Public Use
  Company Number: US-009507513-1603USA009861

PATIENT
  Age: 52 Year
  Sex: Male
  Weight: 78.46 kg

DRUGS (2)
  1. CUBICIN [Suspect]
     Active Substance: DAPTOMYCIN
     Indication: CELLULITIS
     Dosage: 290 MG, ONCE
     Dates: start: 20151218, end: 20151218
  2. CUBICIN [Suspect]
     Active Substance: DAPTOMYCIN
     Indication: ABSCESS
     Dosage: 275 MG, ONCE
     Dates: start: 20150821, end: 20150821

REACTIONS (2)
  - Product use issue [Unknown]
  - No adverse event [Unknown]

NARRATIVE: CASE EVENT DATE: 20151218
